FAERS Safety Report 19283301 (Version 3)
Quarter: 2021Q2

REPORT INFORMATION
  Report Type: Other
  Country: CN (occurrence: CN)
  Receive Date: 20210521
  Receipt Date: 20210602
  Transmission Date: 20210717
  Serious: Yes (Hospitalization)
  Sender: FDA-Public Use
  Company Number: CN-ROCHE-2833858

PATIENT
  Age: 57 Year
  Sex: Male

DRUGS (3)
  1. LUCENTIS [Suspect]
     Active Substance: RANIBIZUMAB
     Indication: CHOROIDAL NEOVASCULARISATION
     Route: 031
     Dates: start: 20210310, end: 20210310
  2. LUCENTIS [Suspect]
     Active Substance: RANIBIZUMAB
     Route: 031
     Dates: start: 20210412, end: 20210412
  3. LUCENTIS [Suspect]
     Active Substance: RANIBIZUMAB
     Route: 031
     Dates: start: 20210414, end: 20210414

REACTIONS (3)
  - Erythema [Not Recovered/Not Resolved]
  - Papule [Not Recovered/Not Resolved]
  - Drug eruption [Unknown]

NARRATIVE: CASE EVENT DATE: 20210510
